FAERS Safety Report 9352393 (Version 1)
Quarter: 2013Q2

REPORT INFORMATION
  Report Type: Spontaneous
  Country: FR (occurrence: FR)
  Receive Date: 20130617
  Receipt Date: 20130617
  Transmission Date: 20140414
  Serious: Yes (Hospitalization)
  Sender: FDA-Public Use
  Company Number: FR-ELI_LILLY_AND_COMPANY-FR201306001948

PATIENT
  Age: 79 Year
  Sex: Female

DRUGS (8)
  1. FORSTEO [Suspect]
     Dosage: 20 UG, QD
     Route: 058
     Dates: start: 201303, end: 20130409
  2. PROPRANOLOL [Concomitant]
     Dosage: 40 MG, TID
  3. PARIET [Concomitant]
     Dosage: 10 MG, QD
  4. XANAX [Concomitant]
     Dosage: 0.25 MG, TID
  5. METEOSPASMYL                       /01017401/ [Concomitant]
     Dosage: UNK, QD
  6. MOVICOL [Concomitant]
     Dosage: UNK, QD
  7. DICLOFENAC [Concomitant]
  8. ZOPICLONE [Concomitant]
     Dosage: 7.5 MG, QD

REACTIONS (1)
  - Cerebrovascular accident [Recovered/Resolved with Sequelae]
